FAERS Safety Report 10334849 (Version 4)
Quarter: 2014Q3

REPORT INFORMATION
  Report Type: Report from Study
  Country: US (occurrence: US)
  Receive Date: 20140723
  Receipt Date: 20140825
  Transmission Date: 20150326
  Serious: Yes (Hospitalization)
  Sender: FDA-Public Use
  Company Number: PHEH2014US014591

PATIENT
  Sex: Female

DRUGS (1)
  1. EXTAVIA [Suspect]
     Active Substance: INTERFERON BETA-1B
     Dosage: 0.25 MG (1 ML), QOD
     Route: 058
     Dates: start: 20140715

REACTIONS (5)
  - Multiple sclerosis relapse [Unknown]
  - Pain [Unknown]
  - Myalgia [Recovered/Resolved]
  - Optic neuritis [Unknown]
  - Headache [Recovered/Resolved]
